FAERS Safety Report 18324907 (Version 1)
Quarter: 2020Q3

REPORT INFORMATION
  Report Type: Spontaneous
  Country: US (occurrence: US)
  Receive Date: 20200929
  Receipt Date: 20200929
  Transmission Date: 20201103
  Serious: Yes (Hospitalization, Disabling)
  Sender: FDA-Public Use
  Company Number: None

PATIENT
  Age: 44 Year
  Sex: Male
  Weight: 100.35 kg

DRUGS (1)
  1. BOTOX [Suspect]
     Active Substance: ONABOTULINUMTOXINA
     Indication: URINARY TRACT PAIN
     Dosage: ?          OTHER ROUTE:INJECTED INTO BLADDER + PROSTATE NERVE?
     Dates: start: 20200629

REACTIONS (1)
  - Urinary retention [None]

NARRATIVE: CASE EVENT DATE: 20200629
